FAERS Safety Report 4358455-7 (Version None)
Quarter: 2004Q2

REPORT INFORMATION
  Report Type: 
  Country: None (occurrence: None)
  Receive Date: 20040511
  Receipt Date: 20040427
  Transmission Date: 20050107
  Serious: Yes (Hospitalization, Other)
  Sender: FDA-Public Use
  Company Number: 2004015659

PATIENT
  Age: 39 Year
  Sex: Male
  Weight: 73 kg

DRUGS (5)
  1. VIAGRA [Suspect]
     Indication: ERECTILE DYSFUNCTION
     Dosage: 80 MG, ORAL
     Route: 048
     Dates: end: 20030417
  2. NIFEDIPINE [Suspect]
     Indication: HYPERTENSION
     Dosage: 120 MG, (3 IN 1 D), ORAL
     Route: 048
     Dates: end: 20030417
  3. TRIPAMIDE (TRIPAMIDE) [Concomitant]
  4. NADOLOL [Concomitant]
  5. TRIAZOLAM [Concomitant]

REACTIONS (21)
  - ASTHENIA [None]
  - BRAIN STEM INFARCTION [None]
  - CARDIOMEGALY [None]
  - CEREBRAL INFARCTION [None]
  - COLD SWEAT [None]
  - DIZZINESS [None]
  - DYSARTHRIA [None]
  - DYSSTASIA [None]
  - GAMMA-GLUTAMYLTRANSFERASE INCREASED [None]
  - HAEMATOCRIT INCREASED [None]
  - HAEMOGLOBIN INCREASED [None]
  - HEAD DISCOMFORT [None]
  - HEMIPLEGIA [None]
  - HYPOAESTHESIA [None]
  - HYPOTENSION [None]
  - LACUNAR INFARCTION [None]
  - PARAESTHESIA [None]
  - SENSORY DISTURBANCE [None]
  - THROMBOTIC STROKE [None]
  - TRANSIENT ISCHAEMIC ATTACK [None]
  - VERTEBRAL ARTERY STENOSIS [None]
